FAERS Safety Report 5850642-1 (Version None)
Quarter: 2008Q3

REPORT INFORMATION
  Report Type: 
  Country: None (occurrence: None)
  Receive Date: 20080818
  Receipt Date: 20080804
  Transmission Date: 20090109
  Serious: Yes (Hospitalization, Other)
  Sender: FDA-Public Use
  Company Number: GXKR2008CA07308

PATIENT
  Age: 80 Year
  Sex: Female

DRUGS (10)
  1. CITALOPRAM HYDROBROMIDE [Suspect]
     Indication: ANXIETY
     Dosage: 10 MG, QD; 20 MG, QD
  2. PROPAFENONE HCL [Suspect]
     Indication: ATRIAL FIBRILLATION
     Dosage: 900 MG, QD; 450 MG, QD
  3. DIGOXIN [Concomitant]
  4. ISOSORBIDE DINITRATE [Concomitant]
  5. SPIRONOLACTONE W/HYDROCHLOROTHIAZIDE (HYDROCHLOROTHIAZIDE, SPIRONOLACT [Concomitant]
  6. SIMVASTATIN [Concomitant]
  7. ACETYLSALICYLIC ACID SRT [Concomitant]
  8. AMLODIPINE [Concomitant]
  9. NITROGLYCERIN ^A.L.^ (GLYCERYL TRINITRATE) [Concomitant]
  10. WARFARIN SODIUM [Concomitant]

REACTIONS (13)
  - ANAEMIA [None]
  - ANXIETY [None]
  - ATRIAL FIBRILLATION [None]
  - BLOOD CREATININE INCREASED [None]
  - BRADYCARDIA [None]
  - CHEST DISCOMFORT [None]
  - CONTUSION [None]
  - DELIRIUM [None]
  - DIZZINESS [None]
  - DRUG INTERACTION [None]
  - FALL [None]
  - GLOMERULAR FILTRATION RATE DECREASED [None]
  - ORTHOSTATIC HYPOTENSION [None]
